FAERS Safety Report 7969202-1 (Version None)
Quarter: 2011Q4

REPORT INFORMATION
  Report Type: 
  Country: None (occurrence: None)
  Receive Date: 20111209
  Receipt Date: 20111202
  Transmission Date: 20120403
  Serious: Yes (Disabling)
  Sender: FDA-Public Use
  Company Number: BE-ASTRAZENECA-2011SE65826

PATIENT
  Age: 40 Year
  Sex: Male
  Weight: 120 kg

DRUGS (1)
  1. SEROQUEL XR [Suspect]
     Indication: DEPRESSION
     Route: 048
     Dates: start: 20091215, end: 20091220

REACTIONS (3)
  - DISTURBANCE IN ATTENTION [None]
  - FEELING DRUNK [None]
  - CONFUSIONAL STATE [None]
